FAERS Safety Report 5612045-4 (Version None)
Quarter: 2008Q1

REPORT INFORMATION
  Report Type: 
  Country: None (occurrence: None)
  Receive Date: 20080129
  Receipt Date: 20080129
  Transmission Date: 20080703
  Serious: No
  Sender: FDA-Public Use
  Company Number: None

PATIENT

DRUGS (1)
  1. HEPARIN [Suspect]

REACTIONS (11)
  - ABDOMINAL PAIN [None]
  - BLOOD DISORDER [None]
  - COMA [None]
  - CONFUSIONAL STATE [None]
  - DIZZINESS [None]
  - INCOHERENT [None]
  - INFECTION [None]
  - PHARMACEUTICAL PRODUCT COMPLAINT [None]
  - POOR QUALITY DRUG ADMINISTERED [None]
  - RENAL PAIN [None]
  - SHOCK [None]
